FAERS Safety Report 9016180 (Version 1)
Quarter: 2013Q1

REPORT INFORMATION
  Report Type: Spontaneous
  Country: US (occurrence: US)
  Receive Date: 20130116
  Receipt Date: 20130116
  Transmission Date: 20140127
  Serious: Yes (Other)
  Sender: FDA-Public Use
  Company Number: CHPA2013US000774

PATIENT
  Age: 71 Year
  Sex: Male

DRUGS (1)
  1. BENEFIBER ORANGE POWDER [Suspect]
     Indication: LAXATIVE SUPPORTIVE CARE
     Dosage: UNK, UNK
     Route: 048

REACTIONS (3)
  - Type 2 diabetes mellitus [Not Recovered/Not Resolved]
  - Arthralgia [Not Recovered/Not Resolved]
  - Off label use [Unknown]
